FAERS Safety Report 6502455-5 (Version None)
Quarter: 2009Q4

REPORT INFORMATION
  Report Type: 
  Country: None (occurrence: None)
  Receive Date: 20091204
  Receipt Date: 20091130
  Transmission Date: 20100525
  Serious: Yes (Hospitalization)
  Sender: FDA-Public Use
  Company Number: WAES 0910USA02623

PATIENT
  Age: 50 Year
  Sex: Male

DRUGS (21)
  1. TAB RALTEGRAVIR POTASSIUM [Suspect]
     Indication: HIV INFECTION
     Dosage: PO; 400 MG/PM PO; 400 MG/BID PO; 300 MG/DAILY PO
     Route: 048
     Dates: start: 20051005, end: 20060910
  2. TAB RALTEGRAVIR POTASSIUM [Suspect]
     Indication: HIV INFECTION
     Dosage: PO; 400 MG/PM PO; 400 MG/BID PO; 300 MG/DAILY PO
     Route: 048
     Dates: start: 20060911, end: 20060911
  3. TAB RALTEGRAVIR POTASSIUM [Suspect]
     Indication: HIV INFECTION
     Dosage: PO; 400 MG/PM PO; 400 MG/BID PO; 300 MG/DAILY PO
     Route: 048
     Dates: start: 20060911, end: 20060911
  4. TAB RALTEGRAVIR POTASSIUM [Suspect]
     Indication: HIV INFECTION
     Dosage: PO; 400 MG/PM PO; 400 MG/BID PO; 300 MG/DAILY PO
     Route: 048
     Dates: start: 20060912
  5. TENOFOVIR DISOPROXIL FUMARATE [Suspect]
     Indication: HIV INFECTION
     Dosage: 300 MG/DAILY
     Dates: start: 20051010
  6. LAMIVUDINE [Suspect]
     Indication: HIV INFECTION
     Dosage: 300 MG/DAILY
     Dates: start: 20051010
  7. PLACEBO (UNSPECIFIED) [Suspect]
     Dosage: PO
     Route: 048
     Dates: start: 20051010
  8. KENACOMA OTIC [Concomitant]
  9. ACETAMINOPHEN AND CODEINE PHOSPHATE [Concomitant]
  10. DICLOFENAC SODIUM [Concomitant]
  11. ESOMEPRAZOLE SODIUM (NEXIUM) [Concomitant]
  12. LERCANIDIPINE HYDROCHLORIDE [Concomitant]
  13. MELOXICAM [Concomitant]
  14. METOCLOPRAMIDE HYDROCHLORIDE [Concomitant]
  15. MIRTAZAPINE [Concomitant]
  16. OXAZEPAM [Concomitant]
  17. OXYCODONE HCL [Concomitant]
  18. PERINDOPRIL ARGININE [Concomitant]
  19. TADALAFIL [Concomitant]
  20. TEMAZEPAM [Concomitant]
  21. VENLAFAXINE HCL [Concomitant]

REACTIONS (8)
  - BACK PAIN [None]
  - BRONCHITIS [None]
  - DEPRESSION [None]
  - HAEMOGLOBIN DECREASED [None]
  - HYPERTENSION [None]
  - OSTEONECROSIS [None]
  - PAIN [None]
  - UPPER LIMB FRACTURE [None]
